FAERS Safety Report 23673094 (Version 1)
Quarter: 2024Q1

REPORT INFORMATION
  Report Type: Spontaneous
  Country: US (occurrence: None)
  Receive Date: 20240325
  Receipt Date: 20240325
  Transmission Date: 20240410
  Serious: Yes (Life-Threatening)
  Sender: FDA-Public Use
  Company Number: None

PATIENT
  Age: 68 Year
  Sex: Male
  Weight: 60 kg

DRUGS (1)
  1. MIRCERA [Suspect]
     Active Substance: METHOXY POLYETHYLENE GLYCOL-EPOETIN BETA
     Indication: Anaemia
     Dosage: FREQUENCY : EVERY OTHER WEEK;?
     Route: 011
     Dates: start: 20240221, end: 20240308

REACTIONS (6)
  - Blood glucose decreased [None]
  - Asthenia [None]
  - Fatigue [None]
  - Loss of consciousness [None]
  - Breath sounds absent [None]
  - Pulse absent [None]

NARRATIVE: CASE EVENT DATE: 20240308
